FAERS Safety Report 4347796-5 (Version None)
Quarter: 2004Q2

REPORT INFORMATION
  Report Type: 
  Country: None (occurrence: None)
  Receive Date: 20040427
  Receipt Date: 20010221
  Transmission Date: 20050107
  Serious: Yes (Hospitalization, Other)
  Sender: FDA-Public Use
  Company Number: 200111721US

PATIENT
  Sex: Female

DRUGS (11)
  1. ARAVA [Suspect]
     Indication: RHEUMATOID ARTHRITIS
     Route: 048
     Dates: start: 20000401, end: 20010213
  2. METHOTREXATE [Concomitant]
     Dosage: DOSE: UNK
     Dates: end: 20001201
  3. VITAMINS NOS [Concomitant]
     Dosage: DOSE: UNK
  4. ATENOLOL [Concomitant]
  5. PREMARIN [Concomitant]
  6. LIPITOR [Concomitant]
  7. HYDROCHLOROTHIAZIDE [Concomitant]
  8. TYLENOL (CAPLET) [Concomitant]
     Dosage: DOSE: UNK
  9. METHOTREXATE [Concomitant]
     Dosage: DOSE: UNK
     Dates: end: 20001201
  10. PLAQUENIL [Concomitant]
     Dosage: DOSE: UNK
     Dates: end: 20001201
  11. CELEBREX [Concomitant]
     Dosage: DOSE: UNK
     Dates: end: 20001201

REACTIONS (6)
  - ANAEMIA POSTOPERATIVE [None]
  - CHOLELITHIASIS [None]
  - DRUG HYPERSENSITIVITY [None]
  - HEPATIC STEATOSIS [None]
  - OSTEOARTHRITIS [None]
  - VIRAL INFECTION [None]
